FAERS Safety Report 4909139-5 (Version None)
Quarter: 2006Q1

REPORT INFORMATION
  Report Type: 
  Country: None (occurrence: None)
  Receive Date: 20060208
  Receipt Date: 20060131
  Transmission Date: 20060701
  Serious: Yes (Hospitalization)
  Sender: FDA-Public Use
  Company Number: SU-2005-004338

PATIENT
  Age: 69 Year
  Sex: Female
  Weight: 64.8644 kg

DRUGS (3)
  1. WELCHOL [Suspect]
     Indication: BLOOD CHOLESTEROL
     Dosage: 3750 MG QD PO
     Route: 048
     Dates: start: 20040517, end: 20040921
  2. ESTRADIOL PATCH [Concomitant]
  3. TYLENOL (CAPLET) [Concomitant]

REACTIONS (2)
  - BLOOD CHOLESTEROL INCREASED [None]
  - PANCREATIC NEOPLASM [None]
